FAERS Safety Report 10437184 (Version 1)
Quarter: 2014Q3

REPORT INFORMATION
  Report Type: Spontaneous
  Country: US (occurrence: US)
  Receive Date: 20140908
  Receipt Date: 20140908
  Transmission Date: 20150326
  Serious: No
  Sender: FDA-Public Use
  Company Number: US-BRISTOL-MYERS SQUIBB COMPANY-20859260

PATIENT
  Age: 50 Year
  Sex: Female
  Weight: 75.73 kg

DRUGS (5)
  1. LEXAPRO [Concomitant]
     Active Substance: ESCITALOPRAM OXALATE
  2. ADVIL [Concomitant]
     Active Substance: IBUPROFEN
     Indication: BACK PAIN
  3. KLONOPIN [Concomitant]
     Active Substance: CLONAZEPAM
  4. ULTRAM [Concomitant]
     Active Substance: TRAMADOL HYDROCHLORIDE
     Indication: BACK PAIN
  5. ABILIFY [Suspect]
     Active Substance: ARIPIPRAZOLE
     Indication: DEPRESSION
     Dosage: 1/2 DOSE DECRESED?RESTARTED AGAIN 2 MG

REACTIONS (3)
  - Blood pressure increased [Unknown]
  - Blood glucose increased [Unknown]
  - Weight increased [Unknown]
